FAERS Safety Report 16390613 (Version 1)
Quarter: 2019Q2

REPORT INFORMATION
  Report Type: Report from Study
  Country: GB (occurrence: GB)
  Receive Date: 20190604
  Receipt Date: 20190604
  Transmission Date: 20190711
  Serious: Yes (Other)
  Sender: FDA-Public Use
  Company Number: GB-INCYTE CORPORATION-2019IN005442

PATIENT

DRUGS (1)
  1. JAKAVI [Suspect]
     Active Substance: RUXOLITINIB
     Indication: PRODUCT USED FOR UNKNOWN INDICATION
     Dosage: UNK
     Route: 065
     Dates: start: 201801, end: 2018

REACTIONS (2)
  - Cytopenia [Unknown]
  - Splenomegaly [Unknown]

NARRATIVE: CASE EVENT DATE: 201801
